FAERS Safety Report 11653675 (Version 2)
Quarter: 2015Q4

REPORT INFORMATION
  Report Type: Spontaneous
  Country: US (occurrence: US)
  Receive Date: 20151022
  Receipt Date: 20151023
  Transmission Date: 20160304
  Serious: No
  Sender: FDA-Public Use
  Company Number: CHPA2015US012301

PATIENT
  Age: 55 Year
  Sex: Male

DRUGS (4)
  1. VOLTAREN [Suspect]
     Active Substance: DICLOFENAC SODIUM
     Indication: LIGAMENT DISORDER
     Dosage: LESS THAN 2 GRAMS, ONCE YESTERDAY (ON THE LOWER LUMBAR AREA)
     Route: 061
     Dates: start: 20151015, end: 20151015
  2. VOLTAREN [Suspect]
     Active Substance: DICLOFENAC SODIUM
     Dosage: 0.5 G, QD LAST NIGHT (ON THE ELBOW)
     Route: 061
     Dates: start: 20151015, end: 20151015
  3. VOLTAREN [Suspect]
     Active Substance: DICLOFENAC SODIUM
     Indication: BACK PAIN
     Dosage: LESS THAN 2 GRAMS TWICE TODAY
     Route: 061
     Dates: start: 20151015
  4. VOLTAREN [Suspect]
     Active Substance: DICLOFENAC SODIUM
     Indication: SOFT TISSUE INJURY
     Dosage: 0.5 GRAM/AGAIN THIS MORNING 2 TIMES (ON THE ELBOW)
     Route: 061
     Dates: start: 20151015

REACTIONS (4)
  - Inappropriate schedule of drug administration [Unknown]
  - Drug administered at inappropriate site [Unknown]
  - Product use issue [Unknown]
  - Incorrect dose administered [Unknown]

NARRATIVE: CASE EVENT DATE: 20151015
